FAERS Safety Report 23048450 (Version 1)
Quarter: 2023Q4

REPORT INFORMATION
  Report Type: Spontaneous
  Country: IT (occurrence: IT)
  Receive Date: 20231010
  Receipt Date: 20231010
  Transmission Date: 20240109
  Serious: Yes (Other)
  Sender: FDA-Public Use
  Company Number: IT-BRISTOL-MYERS SQUIBB COMPANY-2023-141962

PATIENT
  Age: 47 Year
  Sex: Male

DRUGS (2)
  1. NIVOLUMAB [Suspect]
     Active Substance: NIVOLUMAB
     Indication: Malignant melanoma
  2. IPILIMUMAB [Suspect]
     Active Substance: IPILIMUMAB
     Indication: Malignant melanoma

REACTIONS (5)
  - Immune-mediated thyroiditis [Unknown]
  - Immune-mediated hepatitis [Unknown]
  - Immune-mediated enterocolitis [Unknown]
  - Vitiligo [Unknown]
  - Dermatomyositis [Unknown]
